FAERS Safety Report 10398650 (Version 1)
Quarter: 2014Q1

REPORT INFORMATION
  Report Type: Spontaneous
  Country: US (occurrence: None)
  Receive Date: 20130815
  Receipt Date: 20130815
  Transmission Date: 20141002
  Serious: Yes (Hospitalization, Other)
  Sender: FDA-Public Use
  Company Number: ADR-2013-00656

PATIENT
  Sex: Female

DRUGS (1)
  1. BACLOFEN INTRATHECAL [Suspect]
     Indication: PAIN

REACTIONS (8)
  - Muscle spasms [None]
  - Overdose [None]
  - Pain [None]
  - Vomiting [None]
  - Therapeutic response increased [None]
  - Intervertebral disc degeneration [None]
  - Dysgraphia [None]
  - Hypoaesthesia [None]
